FAERS Safety Report 13889361 (Version 1)
Quarter: 2017Q3

REPORT INFORMATION
  Report Type: Spontaneous
  Country: HR (occurrence: HR)
  Receive Date: 20170821
  Receipt Date: 20170821
  Transmission Date: 20171127
  Serious: Yes (Other)
  Sender: FDA-Public Use
  Company Number: HR-ASTRAZENECA-2017SE83843

PATIENT
  Age: 47 Year
  Sex: Male

DRUGS (1)
  1. SEROQUEL [Suspect]
     Active Substance: QUETIAPINE FUMARATE
     Dosage: 200.0MG UNKNOWN
     Route: 048

REACTIONS (4)
  - Somnolence [Unknown]
  - Suicide attempt [Unknown]
  - Tachycardia [Unknown]
  - Intentional overdose [Unknown]

NARRATIVE: CASE EVENT DATE: 20170703
